FAERS Safety Report 15255605 (Version 1)
Quarter: 2018Q3

REPORT INFORMATION
  Report Type: Spontaneous
  Country: US (occurrence: US)
  Receive Date: 20180808
  Receipt Date: 20180808
  Transmission Date: 20181010
  Serious: No
  Sender: FDA-Public Use
  Company Number: US-TEVA-2018-US-938933

PATIENT
  Sex: Female

DRUGS (3)
  1. INFLIXIMAB [Interacting]
     Active Substance: INFLIXIMAB
     Indication: SARCOIDOSIS
     Route: 065
  2. METHOTREXATE. [Suspect]
     Active Substance: METHOTREXATE
     Indication: SARCOIDOSIS
     Route: 065
  3. INFLIXIMAB [Interacting]
     Active Substance: INFLIXIMAB
     Indication: SARCOIDOSIS
     Route: 065

REACTIONS (3)
  - Drug level increased [Unknown]
  - Drug interaction [Unknown]
  - Drug specific antibody [Recovered/Resolved]
